FAERS Safety Report 16212350 (Version 1)
Quarter: 2019Q2

REPORT INFORMATION
  Report Type: Spontaneous
  Country: US (occurrence: US)
  Receive Date: 20190418
  Receipt Date: 20190418
  Transmission Date: 20190711
  Serious: No
  Sender: FDA-Public Use
  Company Number: US-PFIZER INC-2019161708

PATIENT
  Age: 23 Year
  Sex: Female

DRUGS (1)
  1. LYRICA [Suspect]
     Active Substance: PREGABALIN
     Indication: FIBROMYALGIA
     Dosage: 150 MG, UNK (APPROXIMATELY 4-5 TIMES A DAY)

REACTIONS (3)
  - Feeling abnormal [Unknown]
  - Product use issue [Unknown]
  - Overdose [Unknown]
